FAERS Safety Report 6479491-0 (Version None)
Quarter: 2009Q4

REPORT INFORMATION
  Report Type: 
  Country: None (occurrence: None)
  Receive Date: 20091207
  Receipt Date: 20091207
  Transmission Date: 20100525
  Serious: Yes (Hospitalization)
  Sender: FDA-Public Use
  Company Number: None

PATIENT
  Age: 9 Year
  Sex: Male
  Weight: 24 kg

DRUGS (4)
  1. TOPAMAX [Suspect]
     Indication: COMPLEX PARTIAL SEIZURES
     Dosage: 50MG TABS BID - DOSES CHANGED DURING THIS TIME G-TUBE
     Dates: start: 20090901
  2. TOPAMAX [Suspect]
     Indication: COMPLEX PARTIAL SEIZURES
     Dosage: 50MG TABS BID - DOSES CHANGED DURING THIS TIME G-TUBE
     Dates: start: 20091001
  3. TOPAMAX [Suspect]
     Indication: COMPLEX PARTIAL SEIZURES
     Dosage: 50MG TABS BID - DOSES CHANGED DURING THIS TIME G-TUBE
     Dates: start: 20091101
  4. TOPAMAX [Suspect]
     Indication: COMPLEX PARTIAL SEIZURES
     Dosage: 25 MG TABS BID - DOSES CHANGED DURING THIS TIME G-TUBE
     Dates: start: 20090301, end: 20090801

REACTIONS (3)
  - CONVULSION [None]
  - PRODUCT SUBSTITUTION ISSUE [None]
  - STATUS EPILEPTICUS [None]
